FAERS Safety Report 4968363-6 (Version None)
Quarter: 2006Q2

REPORT INFORMATION
  Report Type: 
  Country: None (occurrence: None)
  Receive Date: 20060410
  Receipt Date: 20060404
  Transmission Date: 20061013
  Serious: Yes (Other)
  Sender: FDA-Public Use
  Company Number: US-GILEAD-2006-0009414

PATIENT
  Age: 26 Year
  Sex: Female

DRUGS (2)
  1. TRUVADA [Suspect]
     Indication: HIV INFECTION
     Route: 048
     Dates: end: 20060115
  2. VIRACEPT [Suspect]
     Indication: HIV INFECTION
     Route: 048
     Dates: end: 20060115

REACTIONS (3)
  - ALPHA 1 FOETOPROTEIN ABNORMAL [None]
  - DRUG EXPOSURE DURING PREGNANCY [None]
  - PREGNANCY [None]
